FAERS Safety Report 15523257 (Version 1)
Quarter: 2018Q4

REPORT INFORMATION
  Report Type: Spontaneous
  Country: FR (occurrence: FR)
  Receive Date: 20181018
  Receipt Date: 20181018
  Transmission Date: 20190205
  Serious: Yes (Hospitalization)
  Sender: FDA-Public Use
  Company Number: FR-TEVA-2018-FR-965494

PATIENT
  Age: 74 Year
  Sex: Male
  Weight: 92 kg

DRUGS (1)
  1. OFLOXACINE [Suspect]
     Active Substance: OFLOXACIN
     Indication: ORCHITIS
     Route: 065
     Dates: start: 20180807, end: 20180810

REACTIONS (1)
  - Rash maculo-papular [Recovered/Resolved]

NARRATIVE: CASE EVENT DATE: 20180810
